FAERS Safety Report 16384113 (Version 1)
Quarter: 2019Q2

REPORT INFORMATION
  Report Type: Spontaneous
  Country: US (occurrence: US)
  Receive Date: 20190603
  Receipt Date: 20190603
  Transmission Date: 20190711
  Serious: Yes (Other)
  Sender: FDA-Public Use
  Company Number: US-PFIZER INC-2019230448

PATIENT
  Age: 72 Year

DRUGS (1)
  1. SILDENAFIL CITRATE. [Suspect]
     Active Substance: SILDENAFIL CITRATE
     Dosage: UNK

REACTIONS (6)
  - Stress [Unknown]
  - Disturbance in attention [Unknown]
  - Nervousness [Unknown]
  - Emotional disorder [Unknown]
  - Lung disorder [Unknown]
  - Gait disturbance [Unknown]
